FAERS Safety Report 4543001-5 (Version None)
Quarter: 2005Q1

REPORT INFORMATION
  Report Type: 
  Country: None (occurrence: None)
  Receive Date: 20050103
  Receipt Date: 20041222
  Transmission Date: 20050727
  Serious: Yes (Other)
  Sender: FDA-Public Use
  Company Number: US-JNJFOC-20041206463

PATIENT
  Sex: Male

DRUGS (2)
  1. REMICADE [Suspect]
     Indication: CROHN'S DISEASE
     Route: 042
  2. ALLOPURINOL [Concomitant]

REACTIONS (5)
  - DERMATITIS EXFOLIATIVE [None]
  - DIALYSIS [None]
  - EOSINOPHILIA [None]
  - PHOTOSENSITIVITY REACTION [None]
  - RENAL FAILURE ACUTE [None]
